FAERS Safety Report 15338114 (Version 2)
Quarter: 2018Q4

REPORT INFORMATION
  Report Type: Spontaneous
  Country: UA (occurrence: UA)
  Receive Date: 20180831
  Receipt Date: 20180917
  Transmission Date: 20190204
  Serious: Yes (Life-Threatening)
  Sender: FDA-Public Use
  Company Number: UA-ACCORD-071178

PATIENT
  Age: 47 Month
  Sex: Female

DRUGS (2)
  1. CARBOPA [Suspect]
     Active Substance: CARBOPLATIN
     Indication: ASTROCYTOMA
     Route: 042
     Dates: start: 20170222, end: 20170222
  2. VINCRISTINE [Concomitant]
     Active Substance: VINCRISTINE
     Dosage: 1 ML ONCE A DAY
     Dates: start: 20170222

REACTIONS (5)
  - Rash [Recovered/Resolved]
  - Vomiting [Recovered/Resolved]
  - Abdominal pain [Recovered/Resolved]
  - Angioedema [Recovered/Resolved]
  - Pruritus [Recovered/Resolved]

NARRATIVE: CASE EVENT DATE: 20170322
